FAERS Safety Report 4567725-9 (Version None)
Quarter: 2005Q1

REPORT INFORMATION
  Report Type: 
  Country: None (occurrence: None)
  Receive Date: 20050202
  Receipt Date: 20050125
  Transmission Date: 20050727
  Serious: Yes (Other)
  Sender: FDA-Public Use
  Company Number: PHBS2005CA01404

PATIENT
  Sex: Female

DRUGS (3)
  1. MIACALCIN [Suspect]
     Indication: OSTEOPOROSIS
     Dosage: 200 IU/DAY
     Route: 045
     Dates: start: 20020101
  2. DIDROCAL [Concomitant]
  3. CALCIUM GLUCONATE [Concomitant]

REACTIONS (2)
  - PATHOLOGICAL FRACTURE [None]
  - RHINORRHOEA [None]
